FAERS Safety Report 23800308 (Version 1)
Quarter: 2024Q2

REPORT INFORMATION
  Report Type: Other
  Country: US (occurrence: US)
  Receive Date: 20240430
  Receipt Date: 20240430
  Transmission Date: 20240716
  Serious: Yes (Life-Threatening)
  Sender: FDA-Public Use
  Company Number: US-B.Braun Medical Inc.-2156326

PATIENT
  Age: 43 Year
  Sex: Male

DRUGS (7)
  1. CEFEPIME HYDROCHLORIDE [Suspect]
     Active Substance: CEFEPIME HYDROCHLORIDE
     Indication: Infection
  2. CEFPODOXIME PROXETIL [Suspect]
     Active Substance: CEFPODOXIME PROXETIL
  3. TEMSIROLIMUS [Concomitant]
     Active Substance: TEMSIROLIMUS
  4. METRONIDAZOLE [Concomitant]
     Active Substance: METRONIDAZOLE
  5. VANCOMYCIN HYDROCHLORIDE [Suspect]
     Active Substance: VANCOMYCIN HYDROCHLORIDE
  6. PREDNISONE [Suspect]
     Active Substance: PREDNISONE
  7. AZITHROMYCIN ANHYDROUS [Suspect]
     Active Substance: AZITHROMYCIN ANHYDROUS

REACTIONS (1)
  - Drug ineffective [Unknown]
